FAERS Safety Report 12989438 (Version 2)
Quarter: 2016Q4

REPORT INFORMATION
  Report Type: Spontaneous
  Country: DE (occurrence: DE)
  Receive Date: 20161201
  Receipt Date: 20161219
  Transmission Date: 20170207
  Serious: Yes (Hospitalization)
  Sender: FDA-Public Use
  Company Number: DE-SUN PHARMACEUTICAL INDUSTRIES LTD-2016R1-128664

PATIENT
  Age: 67 Year
  Sex: Male

DRUGS (7)
  1. VALPROIC ACID. [Suspect]
     Active Substance: VALPROIC ACID
     Indication: DEPENDENCE
     Dosage: 300 MG, DAILY
     Route: 048
     Dates: start: 20151008, end: 20151014
  2. GLIMEPIRIDE. [Concomitant]
     Active Substance: GLIMEPIRIDE
     Indication: DIABETES MELLITUS
     Dosage: 6 MG, DAILY
     Route: 048
     Dates: start: 20150922
  3. VALPROIC ACID. [Suspect]
     Active Substance: VALPROIC ACID
     Indication: EPILEPSY
  4. PANTOPRAZOL [Concomitant]
     Active Substance: PANTOPRAZOLE SODIUM
     Indication: GASTROINTESTINAL DISORDER
     Dosage: 20 MG, DAILY
     Route: 048
  5. METFORMIN [Concomitant]
     Active Substance: METFORMIN HYDROCHLORIDE
     Indication: DIABETES MELLITUS
     Dosage: 850 MG, DAILY
     Route: 048
     Dates: start: 20150923
  6. RISPERDAL [Suspect]
     Active Substance: RISPERIDONE
     Indication: ALCOHOL INDUCED PERSISTING DEMENTIA
     Dosage: 1 MG, DAILY
     Route: 048
     Dates: start: 20151006
  7. DIGIMERCK [Concomitant]
     Active Substance: DIGITOXIN
     Indication: CARDIAC DISCOMFORT
     Dosage: 0.07 MG, DAILY
     Route: 048

REACTIONS (1)
  - Pleurothotonus [Recovered/Resolved]

NARRATIVE: CASE EVENT DATE: 20151012
